FAERS Safety Report 15012991 (Version 3)
Quarter: 2018Q3

REPORT INFORMATION
  Report Type: Spontaneous
  Country: US (occurrence: US)
  Receive Date: 20180614
  Receipt Date: 20180709
  Transmission Date: 20181010
  Serious: Yes (Hospitalization, Disabling, Other)
  Sender: FDA-Public Use
  Company Number: US-OTSUKA-2018_015779

PATIENT
  Sex: Male

DRUGS (6)
  1. ABILIFY [Suspect]
     Active Substance: ARIPIPRAZOLE
     Indication: INSOMNIA
  2. ABILIFY [Suspect]
     Active Substance: ARIPIPRAZOLE
     Indication: BIPOLAR DISORDER
     Dosage: 15 MG, QD
     Route: 065
  3. ABILIFY [Suspect]
     Active Substance: ARIPIPRAZOLE
     Indication: MAJOR DEPRESSION
     Dosage: 20 MG, QD
     Route: 065
  4. ABILIFY [Suspect]
     Active Substance: ARIPIPRAZOLE
     Indication: EATING DISORDER
     Dosage: UNK
     Route: 065
  5. ABILIFY [Suspect]
     Active Substance: ARIPIPRAZOLE
     Indication: SCHIZOPHRENIA
     Dosage: 7.5 MG, QD
     Route: 065
     Dates: start: 200401
  6. ABILIFY [Suspect]
     Active Substance: ARIPIPRAZOLE
     Indication: ANXIETY
     Dosage: 30 MG, QD
     Route: 065
     Dates: end: 201805

REACTIONS (19)
  - Compulsive sexual behaviour [Not Recovered/Not Resolved]
  - Product use in unapproved indication [Unknown]
  - Mental disorder [Unknown]
  - Injury [Unknown]
  - Condition aggravated [Unknown]
  - Economic problem [Unknown]
  - Compulsive hoarding [Not Recovered/Not Resolved]
  - Anhedonia [Unknown]
  - Sexual dysfunction [Not Recovered/Not Resolved]
  - Compulsive shopping [Not Recovered/Not Resolved]
  - Anxiety [Unknown]
  - Loss of employment [Unknown]
  - Suicide attempt [Not Recovered/Not Resolved]
  - Gambling disorder [Not Recovered/Not Resolved]
  - Disability [Unknown]
  - Suicidal ideation [Not Recovered/Not Resolved]
  - Eating disorder [Not Recovered/Not Resolved]
  - Emotional distress [Unknown]
  - Pain [Unknown]

NARRATIVE: CASE EVENT DATE: 2004
